FAERS Safety Report 14232500 (Version 1)
Quarter: 2017Q4

REPORT INFORMATION
  Report Type: Spontaneous
  Country: US (occurrence: US)
  Receive Date: 20171128
  Receipt Date: 20171128
  Transmission Date: 20180321
  Serious: No
  Sender: FDA-Public Use
  Company Number: US-JNJFOC-20170921728

PATIENT
  Age: 61 Year
  Sex: Female
  Weight: 50.8 kg

DRUGS (5)
  1. MENS ROGAINE EXTRA STRENGTH [Suspect]
     Active Substance: MINOXIDIL
     Route: 061
  2. BIOTIN [Concomitant]
     Active Substance: BIOTIN
     Indication: ALOPECIA
     Dosage: 1CAP SINCE 6 MONTHS
     Route: 065
  3. MENS ROGAINE EXTRA STRENGTH [Suspect]
     Active Substance: MINOXIDIL
     Indication: ALOPECIA
     Dosage: 1/2 CAPFUL
     Route: 061
     Dates: start: 20170603
  4. CALCIUM PLUS VITAMIN D3 [Concomitant]
     Indication: BONE LOSS
     Dosage: SINCE 6 MONTHS
     Route: 065
  5. FISH OIL [Concomitant]
     Active Substance: FISH OIL
     Indication: ALOPECIA
     Dosage: 2CAPS SINCE 6 MONTHS
     Route: 065

REACTIONS (6)
  - Product use in unapproved indication [Recovering/Resolving]
  - Product use issue [Recovering/Resolving]
  - Product quality issue [Unknown]
  - Overdose [Unknown]
  - Off label use [Recovering/Resolving]
  - Alopecia [Recovering/Resolving]

NARRATIVE: CASE EVENT DATE: 201706
